FAERS Safety Report 6739325-3 (Version None)
Quarter: 2010Q2

REPORT INFORMATION
  Report Type: 
  Country: None (occurrence: None)
  Receive Date: 20100525
  Receipt Date: 20100512
  Transmission Date: 20101027
  Serious: Yes (Other)
  Sender: FDA-Public Use
  Company Number: ES-CELGENEUS-144-50794-10051124

PATIENT

DRUGS (1)
  1. VIDAZA [Suspect]
     Indication: ACUTE LEUKAEMIA
     Route: 058

REACTIONS (1)
  - TOXIC SKIN ERUPTION [None]
